FAERS Safety Report 12633798 (Version 2)
Quarter: 2016Q3

REPORT INFORMATION
  Report Type: Spontaneous
  Country: US (occurrence: US)
  Receive Date: 20160809
  Receipt Date: 20160902
  Transmission Date: 20161109
  Serious: No
  Sender: FDA-Public Use
  Company Number: US-PFIZER INC-2016375846

PATIENT
  Age: 75 Year
  Sex: Male
  Weight: 75 kg

DRUGS (10)
  1. DITROPAN [Concomitant]
     Active Substance: OXYBUTYNIN CHLORIDE
     Dosage: 5 MG, 1X/DAY
     Dates: start: 20160527
  2. FLORASTOR [Concomitant]
     Active Substance: SACCHAROMYCES CEREVISIAE
     Dosage: 250 MG, DAILY
  3. LISINOPRIL. [Concomitant]
     Active Substance: LISINOPRIL
     Indication: HYPERTENSION
     Dosage: 10 MG, AS NEEDED
  4. TESSALON [Concomitant]
     Active Substance: BENZONATATE
     Dosage: 200 MG, AS NEEDED
  5. METOPROLOL. [Concomitant]
     Active Substance: METOPROLOL
     Dosage: 12.5 MG, 2X/DAY
  6. ZANTAC [Concomitant]
     Active Substance: RANITIDINE HYDROCHLORIDE
     Dosage: 150 MG, DAILY
  7. VANCOMYCIN [Concomitant]
     Active Substance: VANCOMYCIN
     Dosage: 250 MG, DAILY
     Dates: end: 20160802
  8. LEVOFLOXACIN. [Concomitant]
     Active Substance: LEVOFLOXACIN
     Dosage: 500 MG, DAILY
     Dates: start: 20160420, end: 20160719
  9. FLOMAX [Concomitant]
     Active Substance: TAMSULOSIN HYDROCHLORIDE
     Dosage: UNK, 1X/DAY
     Dates: start: 201602
  10. VFEND [Suspect]
     Active Substance: VORICONAZOLE
     Indication: RESPIRATORY TRACT INFECTION FUNGAL
     Dosage: TWICE A DAY FOR 1 MONTH, ONCE A DAY FOR 1 MONTH, TWICE A DAY FOR 1 MONTH
     Route: 048
     Dates: start: 20160426, end: 20160719

REACTIONS (19)
  - Vision blurred [Recovered/Resolved]
  - Dyschromatopsia [Recovered/Resolved]
  - Pollakiuria [Unknown]
  - Back pain [Recovering/Resolving]
  - Disease recurrence [Recovering/Resolving]
  - Cough [Recovering/Resolving]
  - Weight increased [Recovering/Resolving]
  - Rash [Unknown]
  - Eye disorder [Recovering/Resolving]
  - Pruritus [Recovering/Resolving]
  - Erythema [Recovering/Resolving]
  - Ocular hyperaemia [Recovered/Resolved]
  - Haemoptysis [Recovering/Resolving]
  - Dysuria [Unknown]
  - Arthritis [Recovering/Resolving]
  - Weight decreased [Unknown]
  - Asthenia [Recovering/Resolving]
  - Fatigue [Recovering/Resolving]
  - Decreased appetite [Recovering/Resolving]

NARRATIVE: CASE EVENT DATE: 20160518
